FAERS Safety Report 10682495 (Version 1)
Quarter: 2014Q4

REPORT INFORMATION
  Report Type: Spontaneous
  Country: US (occurrence: None)
  Receive Date: 20141229
  Receipt Date: 20141229
  Transmission Date: 20150529
  Serious: Yes (Disabling)
  Sender: FDA-Public Use
  Company Number: None

PATIENT
  Age: 63 Year
  Sex: Female
  Weight: 56.7 kg

DRUGS (1)
  1. RECLAST [Suspect]
     Active Substance: ZOLEDRONIC ACID
     Indication: DRUG THERAPY
     Dates: start: 20141215, end: 20141215

REACTIONS (5)
  - Arthralgia [None]
  - Musculoskeletal pain [None]
  - Myalgia [None]
  - Gait disturbance [None]
  - Drug ineffective [None]

NARRATIVE: CASE EVENT DATE: 20141215
